FAERS Safety Report 5377608-2 (Version None)
Quarter: 2007Q3

REPORT INFORMATION
  Report Type: 
  Country: None (occurrence: None)
  Receive Date: 20070703
  Receipt Date: 20070626
  Transmission Date: 20080115
  Serious: Yes (Hospitalization)
  Sender: FDA-Public Use
  Company Number: FR-PFIZER INC-2007006469

PATIENT
  Sex: Male
  Weight: 6.7 kg

DRUGS (3)
  1. SALAZOPYRINE [Suspect]
     Indication: RHEUMATOID ARTHRITIS
  2. VOLTAREN [Suspect]
     Indication: RHEUMATOID ARTHRITIS
     Route: 064
  3. OGAST [Suspect]
     Indication: RHEUMATOID ARTHRITIS

REACTIONS (12)
  - CONGENITAL GENITOURINARY ABNORMALITY [None]
  - DRUG EXPOSURE DURING PREGNANCY [None]
  - FEEDING DISORDER NEONATAL [None]
  - HYPERBILIRUBINAEMIA NEONATAL [None]
  - JAUNDICE NEONATAL [None]
  - NAUSEA [None]
  - PREGNANCY [None]
  - PYELOCALIECTASIS [None]
  - RENAL DYSPLASIA [None]
  - URETERIC STENOSIS [None]
  - WEIGHT DECREASE NEONATAL [None]
  - WHITE BLOOD CELL COUNT INCREASED [None]
